FAERS Safety Report 20697729 (Version 1)
Quarter: 2022Q2

REPORT INFORMATION
  Report Type: Spontaneous
  Country: US (occurrence: US)
  Receive Date: 20220411
  Receipt Date: 20220411
  Transmission Date: 20220721
  Serious: Yes (Other)
  Sender: FDA-Public Use
  Company Number: US-JNJFOC-20220403025

PATIENT
  Age: 57 Year
  Sex: Male
  Weight: 81.720 kg

DRUGS (4)
  1. PREZCOBIX [Suspect]
     Active Substance: COBICISTAT\DARUNAVIR ETHANOLATE
     Indication: HIV infection
     Route: 048
     Dates: start: 2015
  2. PANTOPRAZOLE [Suspect]
     Active Substance: PANTOPRAZOLE
     Indication: Gastrooesophageal reflux disease
     Route: 065
  3. FLUTICASONE [Interacting]
     Active Substance: FLUTICASONE
     Indication: Seasonal allergy
     Route: 065
  4. MOMETASONE [Interacting]
     Active Substance: MOMETASONE
     Indication: Seasonal allergy
     Route: 065

REACTIONS (2)
  - Viral load increased [Unknown]
  - Drug interaction [Unknown]

NARRATIVE: CASE EVENT DATE: 20210301
